FAERS Safety Report 23114810 (Version 2)
Quarter: 2023Q4

REPORT INFORMATION
  Report Type: Report from Study
  Country: BR (occurrence: BR)
  Receive Date: 20231027
  Receipt Date: 20231031
  Transmission Date: 20240109
  Serious: Yes (Other)
  Sender: FDA-Public Use
  Company Number: BR-MYLANLABS-2023M1113502

PATIENT
  Age: 68 Year
  Sex: Female
  Weight: 80 kg

DRUGS (3)
  1. VENLAFAXINE HYDROCHLORIDE [Suspect]
     Active Substance: VENLAFAXINE HYDROCHLORIDE
     Indication: Depression
     Dosage: 75 MILLIGRAM, QD (ONE TABLET DAILY)
     Route: 048
     Dates: start: 202201, end: 202309
  2. VENLAFAXINE HYDROCHLORIDE [Suspect]
     Active Substance: VENLAFAXINE HYDROCHLORIDE
     Indication: Anxiety
  3. VENLAFAXINE HYDROCHLORIDE [Suspect]
     Active Substance: VENLAFAXINE HYDROCHLORIDE
     Indication: Discomfort

REACTIONS (4)
  - Endometrial cancer [Unknown]
  - Pathogen resistance [Not Recovered/Not Resolved]
  - Urinary tract infection [Not Recovered/Not Resolved]
  - Constipation [Not Recovered/Not Resolved]

NARRATIVE: CASE EVENT DATE: 20221201
